FAERS Safety Report 8348874-6 (Version None)
Quarter: 2012Q2

REPORT INFORMATION
  Report Type: 
  Country: None (occurrence: None)
  Receive Date: 20120508
  Receipt Date: 20120423
  Transmission Date: 20120825
  Serious: Yes (Hospitalization, Other)
  Sender: FDA-Public Use
  Company Number: JPI-P-014325

PATIENT
  Age: 47 Year
  Sex: Female

DRUGS (3)
  1. XYREM [Suspect]
     Indication: NARCOLEPSY
     Dosage: 4.5;7.5;9 GM (2.25;3.75;4.5 GM, 2 IN 1 D), ORAL
     Route: 048
     Dates: start: 20110905
  2. XYREM [Suspect]
     Indication: NARCOLEPSY
     Dosage: 4.5;7.5;9 GM (2.25;3.75;4.5 GM, 2 IN 1 D), ORAL
     Route: 048
     Dates: start: 20101026
  3. XYREM [Suspect]
     Indication: NARCOLEPSY
     Dosage: 4.5;7.5;9 GM (2.25;3.75;4.5 GM, 2 IN 1 D), ORAL
     Route: 048
     Dates: start: 20101223

REACTIONS (9)
  - GENITAL PROLAPSE [None]
  - UTERINE PROLAPSE [None]
  - UTERINE ENLARGEMENT [None]
  - URINARY TRACT INFECTION [None]
  - CERVIX ENLARGEMENT [None]
  - SOMNAMBULISM [None]
  - BLOOD POTASSIUM DECREASED [None]
  - VENOUS INSUFFICIENCY [None]
  - BLADDER PROLAPSE [None]
